FAERS Safety Report 8821227 (Version 4)
Quarter: 2012Q4

REPORT INFORMATION
  Report Type: 
  Country: US (occurrence: US)
  Receive Date: 20121002
  Receipt Date: 20121109
  Transmission Date: 20130627
  Serious: Yes (Other)
  Sender: FDA-Public Use
  Company Number: US-B.I. PHARMACEUTICALS,INC./RIDGEFIELD-2012-BP-24046PF

PATIENT
  Sex: Female
  Weight: 54.43 kg

DRUGS (6)
  1. SPIRIVA [Suspect]
     Indication: DYSPNOEA
  2. CHANTIX [Suspect]
     Indication: SMOKING CESSATION THERAPY
     Dosage: 0.5 mg
     Dates: start: 2011
  3. PRISTIQ [Suspect]
     Indication: DEPRESSION
  4. WELLBUTRIN SR [Suspect]
  5. UNSPECIFIED NEBULIZER [Suspect]
     Indication: DYSPNOEA
  6. SYMBICORT [Suspect]
     Indication: DYSPNOEA

REACTIONS (3)
  - Lung neoplasm malignant [Unknown]
  - Chronic obstructive pulmonary disease [Unknown]
  - Dyspnoea [Unknown]
